FAERS Safety Report 7605676-3 (Version None)
Quarter: 2011Q3

REPORT INFORMATION
  Report Type: 
  Country: None (occurrence: None)
  Receive Date: 20110705
  Receipt Date: 20110617
  Transmission Date: 20111222
  Serious: Yes (Hospitalization)
  Sender: FDA-Public Use
  Company Number: 2011MA007715

PATIENT
  Age: 30 Year
  Sex: Male

DRUGS (2)
  1. IBUPROFEN [Suspect]
     Indication: ARTHRALGIA
  2. MORINDA [Suspect]
     Indication: DIABETES MELLITUS INADEQUATE CONTROL

REACTIONS (5)
  - CELLULITIS [None]
  - DIABETIC KETOACIDOSIS [None]
  - DIABETIC RETINOPATHY [None]
  - HYPERKALAEMIA [None]
  - HYPOALDOSTERONISM [None]
